FAERS Safety Report 4626698-0 (Version None)
Quarter: 2005Q2

REPORT INFORMATION
  Report Type: 
  Country: None (occurrence: None)
  Receive Date: 20050405
  Receipt Date: 20050323
  Transmission Date: 20051028
  Serious: Yes (Other)
  Sender: FDA-Public Use
  Company Number: US-JNJFOC-20041102573

PATIENT
  Sex: Female
  Weight: 56.7 kg

DRUGS (4)
  1. REMICADE [Suspect]
     Route: 042
  2. REMICADE [Suspect]
     Indication: RHEUMATOID ARTHRITIS
     Route: 042
  3. CELEBREX [Concomitant]
     Indication: RHEUMATOID ARTHRITIS
  4. ARAVA [Concomitant]
     Indication: RHEUMATOID ARTHRITIS

REACTIONS (3)
  - ANTINUCLEAR ANTIBODY POSITIVE [None]
  - HAEMATURIA [None]
  - RASH [None]
